FAERS Safety Report 5373356-3 (Version None)
Quarter: 2007Q2

REPORT INFORMATION
  Report Type: 
  Country: None (occurrence: None)
  Receive Date: 20070628
  Receipt Date: 20070622
  Transmission Date: 20071010
  Serious: Yes (Hospitalization)
  Sender: FDA-Public Use
  Company Number: DE-JNJFOC-20070605292

PATIENT
  Age: 47 Year
  Sex: Female

DRUGS (15)
  1. HALDOL [Suspect]
     Route: 048
  2. HALDOL [Suspect]
     Route: 048
  3. HALDOL [Suspect]
     Route: 048
  4. HALDOL [Suspect]
     Indication: DRUG USE FOR UNKNOWN INDICATION
     Route: 048
  5. MELNEURIN [Interacting]
     Route: 048
  6. MELNEURIN [Interacting]
     Route: 048
  7. MELNEURIN [Interacting]
     Indication: DRUG USE FOR UNKNOWN INDICATION
     Route: 048
  8. PANTOZOL [Concomitant]
     Route: 048
  9. DISALUNIL [Concomitant]
  10. FUROSEMIDE [Concomitant]
     Route: 048
  11. FUROSEMIDE [Concomitant]
     Route: 048
  12. RAMIPRIL [Concomitant]
  13. ACC 200 [Concomitant]
     Route: 048
  14. DIAZEPAM [Concomitant]
     Route: 048
  15. DIAZEPAM [Concomitant]
     Route: 048

REACTIONS (2)
  - AKATHISIA [None]
  - DRUG INTERACTION [None]
